FAERS Safety Report 5963264-9 (Version None)
Quarter: 2008Q4

REPORT INFORMATION
  Report Type: 
  Country: None (occurrence: None)
  Receive Date: 20081120
  Receipt Date: 20081120
  Transmission Date: 20090506
  Serious: Yes (Hospitalization)
  Sender: FDA-Public Use
  Company Number: None

PATIENT
  Age: 58 Year
  Sex: Male
  Weight: 69.8 kg

DRUGS (1)
  1. WARFARIN SODIUM [Suspect]
     Indication: AORTIC VALVE DISEASE
     Dosage: 7.5MG  EVERY DAY PO
     Route: 048
     Dates: start: 20080101

REACTIONS (2)
  - HAEMATURIA [None]
  - HAEMORRHAGE [None]
